FAERS Safety Report 14021956 (Version 1)
Quarter: 2017Q3

REPORT INFORMATION
  Report Type: Spontaneous
  Country: US (occurrence: US)
  Receive Date: 20170928
  Receipt Date: 20170928
  Transmission Date: 20171128
  Serious: Yes (Other)
  Sender: FDA-Public Use
  Company Number: None

PATIENT
  Age: 40 Year
  Sex: Female
  Weight: 58.05 kg

DRUGS (1)
  1. MIRTAZAPINE. [Suspect]
     Active Substance: MIRTAZAPINE
     Indication: BIPOLAR DISORDER
     Dosage: ?          QUANTITY:1 TABLET(S); AT BED TIME ORAL?
     Route: 048
     Dates: start: 20170915

REACTIONS (6)
  - Suicidal ideation [None]
  - Decreased appetite [None]
  - Bipolar disorder [None]
  - Lethargy [None]
  - Drug ineffective [None]
  - Disease recurrence [None]

NARRATIVE: CASE EVENT DATE: 20170928
